FAERS Safety Report 11756097 (Version 1)
Quarter: 2015Q4

REPORT INFORMATION
  Report Type: Spontaneous
  Country: FR (occurrence: FR)
  Receive Date: 20151119
  Receipt Date: 20151119
  Transmission Date: 20160304
  Serious: No
  Sender: FDA-Public Use
  Company Number: FR-PHOTOCURE ASA-HX-PM-FR-140900013

PATIENT
  Age: 79 Year
  Sex: Female

DRUGS (1)
  1. CYSVIEW [Suspect]
     Active Substance: HEXAMINOLEVULINATE HYDROCHLORIDE
     Indication: BLADDER CANCER
     Dosage: 85 MILLIGRAM
     Dates: start: 20140922, end: 20140922

REACTIONS (1)
  - Drug ineffective [Unknown]

NARRATIVE: CASE EVENT DATE: 20140922
